FAERS Safety Report 9341399 (Version 1)
Quarter: 2013Q2

REPORT INFORMATION
  Report Type: Spontaneous
  Country: US (occurrence: US)
  Receive Date: 20130611
  Receipt Date: 20130611
  Transmission Date: 20140414
  Serious: Yes (Other)
  Sender: FDA-Public Use
  Company Number: US-BAYER-2013-069342

PATIENT
  Sex: Female

DRUGS (1)
  1. MIRENA [Suspect]
     Dosage: 20 MCG/24HR, CONT
     Route: 015
     Dates: start: 201108

REACTIONS (5)
  - Genital haemorrhage [Recovered/Resolved]
  - Genital discharge [None]
  - Vaginitis bacterial [None]
  - Ovarian cyst [None]
  - Pain [Recovered/Resolved]
